FAERS Safety Report 9719739 (Version 1)
Quarter: 2013Q4

REPORT INFORMATION
  Report Type: Spontaneous
  Country: AU (occurrence: AU)
  Receive Date: 20131128
  Receipt Date: 20131128
  Transmission Date: 20140711
  Serious: Yes (Hospitalization)
  Sender: FDA-Public Use
  Company Number: AU-ROCHE-1309617

PATIENT
  Age: 48 Year
  Sex: Male

DRUGS (6)
  1. OSELTAMIVIR [Suspect]
     Indication: PRODUCT USED FOR UNKNOWN INDICATION
     Route: 065
  2. AZITHROMYCIN [Suspect]
     Indication: PRODUCT USED FOR UNKNOWN INDICATION
     Route: 065
     Dates: start: 20130919
  3. PIPERACILLIN/TAZOBACTAM [Suspect]
     Indication: PRODUCT USED FOR UNKNOWN INDICATION
     Route: 065
     Dates: start: 20130914
  4. VANCOMYCIN HYDROCHLORIDE [Suspect]
     Indication: PRODUCT USED FOR UNKNOWN INDICATION
     Route: 065
     Dates: start: 20130916
  5. LACTULOSE [Concomitant]
     Route: 065
  6. COLOXYL + SENNA [Concomitant]

REACTIONS (4)
  - Eosinophil count increased [Not Recovered/Not Resolved]
  - Anuria [Not Recovered/Not Resolved]
  - Rash [Not Recovered/Not Resolved]
  - Tubulointerstitial nephritis [Not Recovered/Not Resolved]
